FAERS Safety Report 7770037-3 (Version None)
Quarter: 2011Q3

REPORT INFORMATION
  Report Type: 
  Country: None (occurrence: None)
  Receive Date: 20110922
  Receipt Date: 20100115
  Transmission Date: 20111222
  Serious: No
  Sender: FDA-Public Use
  Company Number: US-ASTRAZENECA-2009SE20945

PATIENT
  Age: 49 Year
  Sex: Female
  Weight: 136.1 kg

DRUGS (11)
  1. AMITRIPTYLINE HCL [Concomitant]
  2. ATIVAN [Concomitant]
     Route: 048
     Dates: start: 20040101
  3. NITROGLYCERIN [Concomitant]
     Route: 048
     Dates: start: 20040101
  4. WELLBUTRIN [Concomitant]
     Dates: start: 20040101
  5. SEROQUEL [Suspect]
     Route: 048
     Dates: start: 20041119
  6. LOTREL [Concomitant]
     Indication: HYPERTENSION
     Dates: start: 20040101
  7. ZOLOFT [Concomitant]
     Dates: start: 20060101
  8. SEROQUEL [Suspect]
     Indication: DEPRESSION
     Route: 048
     Dates: start: 20000101, end: 20070101
  9. LORAREPAM [Concomitant]
  10. BUSPAR [Concomitant]
     Route: 048
     Dates: start: 20040101
  11. RESTORIL [Concomitant]
     Dates: start: 20060404

REACTIONS (7)
  - OBESITY [None]
  - WEIGHT INCREASED [None]
  - HYPERGLYCAEMIA [None]
  - PALPITATIONS [None]
  - CARDIAC FAILURE CONGESTIVE [None]
  - DIABETES MELLITUS [None]
  - TYPE 2 DIABETES MELLITUS [None]
